FAERS Safety Report 8830970 (Version 1)
Quarter: 2012Q4

REPORT INFORMATION
  Report Type: 
  Country: US (occurrence: US)
  Receive Date: 20121008
  Receipt Date: 20121008
  Transmission Date: 20130627
  Serious: Yes (Death)
  Sender: FDA-Public Use
  Company Number: US-PFIZER INC-2012247431

PATIENT

DRUGS (1)
  1. CADUET [Suspect]
     Dosage: 10 /10 mg
     Dates: end: 20121004

REACTIONS (1)
  - Death [Fatal]
